FAERS Safety Report 5426621-5 (Version None)
Quarter: 2007Q3

REPORT INFORMATION
  Report Type: 
  Country: None (occurrence: None)
  Receive Date: 20070731
  Receipt Date: 20070530
  Transmission Date: 20080115
  Serious: No
  Sender: FDA-Public Use
  Company Number: 2006PV013767

PATIENT
  Age: 66 Year
  Sex: Female
  Weight: 96.2 kg

DRUGS (16)
  1. EXENATIDE(EXENATIDE) PEN,DISPOSABLE [Suspect]
     Indication: TYPE 2 DIABETES MELLITUS
     Dosage: 5 UG, 2/D, SUBCUTANEOUS, 10 UG,2/D, SUBCUTANEOUS
     Route: 058
     Dates: start: 20060508, end: 20070101
  2. EXENATIDE(EXENATIDE) PEN,DISPOSABLE [Suspect]
     Indication: TYPE 2 DIABETES MELLITUS
     Dosage: 5 UG, 2/D, SUBCUTANEOUS, 10 UG,2/D, SUBCUTANEOUS
     Route: 058
     Dates: start: 20060601
  3. EXENATIDE(EXENATIDE) PEN,DISPOSABLE [Suspect]
     Indication: TYPE 2 DIABETES MELLITUS
     Dosage: 5 UG, 2/D, SUBCUTANEOUS, 10 UG,2/D, SUBCUTANEOUS
     Route: 058
     Dates: start: 20070101
  4. EXENATIDE(EXENATIDE) PEN,DISPOSABLE [Suspect]
  5. EXENATIDE(EXENATIDE) PEN,DISPOSABLE [Suspect]
  6. GLIMEPIRIDE [Concomitant]
  7. ACTOS [Concomitant]
  8. ALLERGY MEDICATION [Concomitant]
  9. THYROID SUPPLEMENT [Concomitant]
  10. BLOOD PRESSURE MEDICATION [Concomitant]
  11. NEXIUM [Concomitant]
  12. ZETIA [Concomitant]
  13. AVALIDE [Concomitant]
  14. MOBIC [Concomitant]
  15. SPIRONOLACTONE [Concomitant]
  16. SYNTHROID [Concomitant]

REACTIONS (8)
  - BLOOD GLUCOSE INCREASED [None]
  - DECREASED APPETITE [None]
  - INCORRECT DOSE ADMINISTERED [None]
  - INJECTION SITE BRUISING [None]
  - INJECTION SITE HAEMORRHAGE [None]
  - INJECTION SITE IRRITATION [None]
  - INJECTION SITE PAIN [None]
  - WEIGHT DECREASED [None]
